FAERS Safety Report 24382728 (Version 1)
Quarter: 2024Q4

REPORT INFORMATION
  Report Type: Spontaneous
  Country: GB (occurrence: GB)
  Receive Date: 20241001
  Receipt Date: 20241001
  Transmission Date: 20250115
  Serious: Yes (Other)
  Sender: MYLAN
  Company Number: GB-MYLANLABS-2024M1086922

PATIENT
  Age: 8 Year
  Sex: Female

DRUGS (2)
  1. VALPROIC ACID [Suspect]
     Active Substance: VALPROIC ACID
     Indication: Dyskinesia
     Dosage: 5 MILLIGRAM/KILOGRAM, QD
     Route: 065
  2. VALPROIC ACID [Suspect]
     Active Substance: VALPROIC ACID
     Indication: Sydenham^s chorea
     Dosage: 20 MILLIGRAM/KILOGRAM, BID, INCREASED DAILY TO 270MG
     Route: 065

REACTIONS (1)
  - Drug ineffective [Unknown]
